FAERS Safety Report 15209296 (Version 1)
Quarter: 2018Q3

REPORT INFORMATION
  Report Type: Spontaneous
  Country: FR (occurrence: FR)
  Receive Date: 20180727
  Receipt Date: 20180727
  Transmission Date: 20181010
  Serious: Yes (Hospitalization)
  Sender: FDA-Public Use
  Company Number: FR-TEVA-2018-FR-930915

PATIENT
  Age: 61 Year
  Sex: Male

DRUGS (3)
  1. CELLCEPT [Suspect]
     Active Substance: MYCOPHENOLATE MOFETIL\MYCOPHENOLATE MOFETIL HYDROCHLORIDE
     Indication: TRANSPLANT
     Route: 065
     Dates: start: 20170530
  2. MERONEM [Suspect]
     Active Substance: MEROPENEM
     Indication: INFECTION
     Route: 065
     Dates: start: 20170530, end: 20170621
  3. VANCOMYCINE [Suspect]
     Active Substance: VANCOMYCIN
     Indication: INFECTION
     Route: 065
     Dates: start: 20170530, end: 20170621

REACTIONS (1)
  - Acute generalised exanthematous pustulosis [Recovered/Resolved]

NARRATIVE: CASE EVENT DATE: 20170618
